FAERS Safety Report 17449238 (Version 1)
Quarter: 2020Q1

REPORT INFORMATION
  Report Type: Spontaneous
  Country: HU (occurrence: HU)
  Receive Date: 20200224
  Receipt Date: 20200224
  Transmission Date: 20200409
  Serious: Yes (Death, Hospitalization)
  Sender: FDA-Public Use
  Company Number: HU-ASTRAZENECA-2020SE26104

PATIENT
  Age: 66 Year
  Sex: Female

DRUGS (2)
  1. PALBOCICLIB [Suspect]
     Active Substance: PALBOCICLIB
     Indication: BREAST CANCER METASTATIC
     Route: 048
     Dates: start: 20190116
  2. FULVESTRANT. [Suspect]
     Active Substance: FULVESTRANT
     Indication: BREAST CANCER METASTATIC
     Route: 030
     Dates: start: 20190116

REACTIONS (2)
  - Pulmonary embolism [Fatal]
  - Pulmonary oedema [Unknown]
